FAERS Safety Report 8599163-6 (Version None)
Quarter: 2012Q3

REPORT INFORMATION
  Report Type: 
  Country: None (occurrence: None)
  Receive Date: 20120816
  Receipt Date: 20120810
  Transmission Date: 20120928
  Serious: Yes (Other)
  Sender: FDA-Public Use
  Company Number: US-PFIZER INC-2012172205

PATIENT
  Age: 68 Year
  Sex: Male
  Weight: 64.853 kg

DRUGS (4)
  1. CELEBREX [Suspect]
     Indication: HAND FRACTURE
     Dosage: 200 MG, DAILY
     Route: 048
     Dates: start: 20120418, end: 20120711
  2. NORVASC [Concomitant]
     Dosage: UNK, DAILY
  3. ACETYLSALICYLIC ACID [Concomitant]
     Dosage: UNK, AS NEEDED
  4. LIPITOR [Concomitant]
     Indication: HYPERTENSION
     Dosage: UNK, DAILY

REACTIONS (3)
  - VISION BLURRED [None]
  - DIPLOPIA [None]
  - CEREBRAL THROMBOSIS [None]
